FAERS Safety Report 24442084 (Version 6)
Quarter: 2025Q3

REPORT INFORMATION
  Report Type: Spontaneous
  Country: US (occurrence: US)
  Receive Date: 20241016
  Receipt Date: 20250903
  Transmission Date: 20251021
  Serious: No
  Sender: ROCHE
  Company Number: US-ROCHE-3528888

PATIENT
  Age: 32 Year
  Sex: Male
  Weight: 111.13 kg

DRUGS (6)
  1. HEMLIBRA [Suspect]
     Active Substance: EMICIZUMAB-KXWH
     Indication: Factor VIII deficiency
     Dosage: STRENGTH: 105MG/ 0.7ML AND 60MG/0.4 ML
     Route: 058
     Dates: start: 202402
  2. HEMLIBRA [Suspect]
     Active Substance: EMICIZUMAB-KXWH
     Dosage: STRENGTH: 105MG/ 0.7ML AND 60MG/0.4 ML
     Route: 058
     Dates: start: 202402
  3. HEMLIBRA [Suspect]
     Active Substance: EMICIZUMAB-KXWH
     Dosage: STRENGTH: 105MG/ 0.7ML AND 60MG/0.4 ML
     Route: 058
     Dates: start: 202402
  4. HEMLIBRA [Suspect]
     Active Substance: EMICIZUMAB-KXWH
     Dosage: STRENGTH: 105MG/ 0.7ML AND 60MG/0.4 ML
     Route: 058
     Dates: start: 202402
  5. HEMLIBRA [Suspect]
     Active Substance: EMICIZUMAB-KXWH
     Dosage: STRENGTH: 105MG/ 0.7ML AND 60MG/0.4 ML
     Route: 058
     Dates: start: 20250319
  6. SODIUM CHLORIDE [Concomitant]
     Active Substance: SODIUM CHLORIDE

REACTIONS (6)
  - Haemorrhage [Recovered/Resolved]
  - Haemorrhage [Unknown]
  - Weight increased [Unknown]
  - Off label use [Unknown]
  - Medication error [Unknown]
  - Rectal haemorrhage [Recovered/Resolved]

NARRATIVE: CASE EVENT DATE: 20241002
